FAERS Safety Report 22075852 (Version 2)
Quarter: 2023Q2

REPORT INFORMATION
  Report Type: Spontaneous
  Country: US (occurrence: US)
  Receive Date: 20230308
  Receipt Date: 20230424
  Transmission Date: 20230721
  Serious: No
  Sender: FDA-Public Use
  Company Number: US-JNJFOC-20230263998

PATIENT
  Age: 50 Year
  Sex: Female

DRUGS (1)
  1. TREMFYA [Suspect]
     Active Substance: GUSELKUMAB
     Indication: Psoriatic arthropathy
     Route: 065

REACTIONS (6)
  - Needle issue [Unknown]
  - Accidental exposure to product [Unknown]
  - Device malfunction [Unknown]
  - Product dose omission issue [Unknown]
  - Device issue [Unknown]
  - Product administration error [Unknown]

NARRATIVE: CASE EVENT DATE: 20230225
